FAERS Safety Report 5676671-9 (Version None)
Quarter: 2008Q1

REPORT INFORMATION
  Report Type: 
  Country: None (occurrence: None)
  Receive Date: 20080321
  Receipt Date: 20080321
  Transmission Date: 20080703
  Serious: No
  Sender: FDA-Public Use
  Company Number: None

PATIENT
  Age: 49 Year
  Sex: Male
  Weight: 97 kg

DRUGS (2)
  1. VARENICLINE [Suspect]
     Indication: EAR PAIN
     Dates: start: 20071012, end: 20071015
  2. VARENICLINE [Suspect]
     Indication: PAIN
     Dates: start: 20071012, end: 20071015

REACTIONS (1)
  - EAR PAIN [None]
